FAERS Safety Report 19713752 (Version 2)
Quarter: 2022Q1

REPORT INFORMATION
  Report Type: Spontaneous
  Country: GB (occurrence: GB)
  Receive Date: 20210818
  Receipt Date: 20220118
  Transmission Date: 20220424
  Serious: Yes (Hospitalization)
  Sender: FDA-Public Use
  Company Number: GB-MHRA-MIDB-2892C579-D82B-4973-83FB-C079BDD4D2FA

PATIENT
  Age: 93 Year
  Sex: Male

DRUGS (21)
  1. CITALOPRAM [Suspect]
     Active Substance: CITALOPRAM HYDROBROMIDE
     Indication: Product used for unknown indication
     Dosage: 20 MILLIGRAM, DAILY
     Route: 065
  2. APIXABAN [Suspect]
     Active Substance: APIXABAN
     Indication: Product used for unknown indication
     Dosage: 2.5 MILLIGRAM, BID
     Route: 065
  3. DULOXETINE [Suspect]
     Active Substance: DULOXETINE
     Indication: Product used for unknown indication
     Dosage: 60 MILLIGRAM, DAILY,EACH MORNING
     Route: 065
  4. ATORVASTATIN [Concomitant]
     Active Substance: ATORVASTATIN
     Indication: Product used for unknown indication
     Dosage: 80 MILLIGRAM, DAILY,AT NIGHT
     Route: 065
  5. BISACODYL [Concomitant]
     Active Substance: BISACODYL
     Indication: Constipation
     Dosage: 5 MILLIGRAM,AT NIGHT
     Route: 065
  6. BISOPROLOL [Concomitant]
     Active Substance: BISOPROLOL
     Indication: Product used for unknown indication
     Dosage: 1.25 MILLIGRAM, DAILY
     Route: 065
  7. CALCIUM CARBONATE\CHOLECALCIFEROL [Concomitant]
     Active Substance: CALCIUM CARBONATE\CHOLECALCIFEROL
     Indication: Product used for unknown indication
     Dosage: 1 DOSAGE FORM, BID
     Route: 065
  8. DIGOXIN [Concomitant]
     Active Substance: DIGOXIN
     Indication: Product used for unknown indication
     Dosage: 62.5 MICROGRAM, DAILY
     Route: 065
  9. DOXYCYCLINE [Concomitant]
     Active Substance: DOXYCYCLINE
     Indication: Product used for unknown indication
     Dosage: TAKE 2 IMMEDIATELY, THEN ONE ONCE DAILY. 6 ISSUED.
     Route: 065
     Dates: start: 20210322
  10. FERROUS FUMARATE [Concomitant]
     Active Substance: FERROUS FUMARATE
     Indication: Product used for unknown indication
     Dosage: 210 MILLIGRAM, TID
     Route: 065
  11. FUROSEMIDE [Concomitant]
     Active Substance: FUROSEMIDE
     Indication: Product used for unknown indication
     Dosage: 120 MILLIGRAM, DAILY,TWO TABLETS IN THE MORNING AND ONE AT LUNCH TIME
     Route: 065
  12. GABAPENTIN [Concomitant]
     Active Substance: GABAPENTIN
     Indication: Product used for unknown indication
     Dosage: 300 MILLIGRAM, TID
     Route: 065
  13. NITROGLYCERIN [Concomitant]
     Active Substance: NITROGLYCERIN
     Indication: Chest pain
     Dosage: SPRAY ONE OR TWO DOSES UNDER TONGUE AND THEN CLOSE MOUTH AS DIRECTED, PHARMACEUTICAL FORMULATION: SU
     Route: 065
  14. LANSOPRAZOLE [Concomitant]
     Active Substance: LANSOPRAZOLE
     Indication: Product used for unknown indication
     Dosage: 30 MILLIGRAM, DAILY, EACH MORNING
     Route: 065
  15. INSULIN ASPART [Concomitant]
     Active Substance: INSULIN ASPART
     Indication: Product used for unknown indication
     Dosage: 30 100UNITS/ML  27 UNITS BEFORE BREAKFAST, 24 UNITS BEFORE EVENING MEAL, SUSPENSION FOR INJECTION IN
     Route: 058
  16. ACETAMINOPHEN [Concomitant]
     Active Substance: ACETAMINOPHEN
     Indication: Pain
     Dosage: 500 MILLIGRAM, TAKE ONE OR TWO TABLETS UP TO FOUR TIMES A DAY
     Route: 065
  17. QUININE [Concomitant]
     Active Substance: QUININE
     Indication: Product used for unknown indication
     Dosage: 200 MILLIGRAM, DAILY, AT NIGHT
     Route: 065
  18. PFIZER-BIONTECH COVID-19 VACCINE [Concomitant]
     Active Substance: TOZINAMERAN
     Indication: COVID-19 immunisation
     Dosage: 0.3 MILLILITER
     Route: 030
  19. BALNEUM PLUS CREAM [Concomitant]
     Indication: Dry skin
     Dosage: 1 DOSAGE FORM, BID, APPLY
     Route: 065
  20. AMOXICILLIN [Concomitant]
     Active Substance: AMOXICILLIN
     Indication: Product used for unknown indication
     Dosage: 500 MILLIGRAM, TID
     Route: 065
  21. DEXTROSE [Concomitant]
     Active Substance: DEXTROSE
     Indication: Product used for unknown indication
     Dosage: 1/4 TUBE GIVEN DUE TO LOW BLOOD GLUCOSE AT 07:45
     Route: 065

REACTIONS (2)
  - Upper gastrointestinal haemorrhage [Unknown]
  - Melaena [Unknown]
